FAERS Safety Report 8937199 (Version 1)
Quarter: 2012Q4

REPORT INFORMATION
  Report Type: Spontaneous
  Country: US (occurrence: None)
  Receive Date: 20121128
  Receipt Date: 20121128
  Transmission Date: 20130627
  Serious: Yes (Hospitalization)
  Sender: FDA-Public Use
  Company Number: None

PATIENT
  Age: 65 Year
  Sex: Male
  Weight: 105.7 kg

DRUGS (5)
  1. AZATHIOPRINE [Suspect]
     Indication: ULCERATIVE COLITIS
     Dosage: RECENT   ?   PO
     Route: 048
  2. WARFARIN [Concomitant]
  3. PERCOCET [Concomitant]
  4. MORPHINE [Concomitant]
  5. LYRICA [Concomitant]

REACTIONS (4)
  - Nausea [None]
  - Vomiting [None]
  - Drug intolerance [None]
  - Hypotension [None]
